FAERS Safety Report 4863253-1 (Version None)
Quarter: 2005Q4

REPORT INFORMATION
  Report Type: 
  Country: None (occurrence: None)
  Receive Date: 20051216
  Receipt Date: 20051204
  Transmission Date: 20060501
  Serious: Yes (Hospitalization)
  Sender: FDA-Public Use
  Company Number: 2005PV005336

PATIENT
  Age: 47 Year
  Sex: Male
  Weight: 155.5838 kg

DRUGS (5)
  1. BYETTA [Suspect]
     Indication: DIABETES MELLITUS NON-INSULIN-DEPENDENT
     Dosage: 5 MCG; BID; SC
     Route: 058
     Dates: start: 20050708, end: 20051201
  2. ETHMOZINE [Suspect]
     Indication: ATRIAL FLUTTER
     Dates: end: 20051101
  3. ETHMOZINE [Suspect]
     Indication: HEART RATE IRREGULAR
     Dates: end: 20051101
  4. METFORMIN [Concomitant]
  5. ETHNOMVINE [Concomitant]

REACTIONS (5)
  - ATRIAL FLUTTER [None]
  - HEART RATE INCREASED [None]
  - HEART RATE IRREGULAR [None]
  - THERAPY NON-RESPONDER [None]
  - WEIGHT DECREASED [None]
